FAERS Safety Report 19239634 (Version 2)
Quarter: 2021Q2

REPORT INFORMATION
  Report Type: Spontaneous
  Country: US (occurrence: US)
  Receive Date: 20210511
  Receipt Date: 20210622
  Transmission Date: 20210717
  Serious: Yes (Hospitalization)
  Sender: FDA-Public Use
  Company Number: US-LUPIN PHARMACEUTICALS INC.-2021-06681

PATIENT
  Age: 85 Year
  Sex: Female

DRUGS (7)
  1. GABAPENTIN. [Suspect]
     Active Substance: GABAPENTIN
     Indication: PRODUCT USED FOR UNKNOWN INDICATION
     Dosage: UNK
     Route: 065
  2. KETAMINE [Suspect]
     Active Substance: KETAMINE
     Dosage: UNK, INFUSION RATE: 1.5 MG/KG/HR (ON DAY 2)
     Route: 065
  3. KETAMINE [Suspect]
     Active Substance: KETAMINE
     Dosage: UNK, INFUSION RATE: 1 MG/KG/HR (ON DAY 2)
     Route: 065
  4. LEVETIRACETAM. [Concomitant]
     Active Substance: LEVETIRACETAM
     Indication: FLUCTUANCE
     Dosage: 500 MILLIGRAM, BID
     Route: 065
  5. LEVETIRACETAM. [Concomitant]
     Active Substance: LEVETIRACETAM
     Dosage: 1000 MILLIGRAM, BID
     Route: 065
  6. KETAMINE [Suspect]
     Active Substance: KETAMINE
     Indication: NEUROLOGICAL DECOMPENSATION
     Dosage: UNK, INFUSION RATE: 0.5 MG/KG/HR (ON DAY 1)
     Route: 065
  7. DEXAMETHASONE. [Concomitant]
     Active Substance: DEXAMETHASONE
     Indication: SUBDURAL HAEMATOMA
     Dosage: 4 MILLIGRAM
     Route: 065

REACTIONS (2)
  - Somnolence [Recovering/Resolving]
  - Sedation [Recovering/Resolving]
